FAERS Safety Report 23123045 (Version 2)
Quarter: 2023Q4

REPORT INFORMATION
  Report Type: Spontaneous
  Country: US (occurrence: US)
  Receive Date: 20231030
  Receipt Date: 20231211
  Transmission Date: 20240110
  Serious: No
  Sender: FDA-Public Use
  Company Number: US-Merck Healthcare KGaA-2023481229

PATIENT
  Sex: Male

DRUGS (2)
  1. SEROSTIM [Suspect]
     Active Substance: SOMATROPIN
     Indication: HIV infection
     Dosage: EVERY NIGHT
     Route: 058
     Dates: start: 202101
  2. SEROSTIM [Suspect]
     Active Substance: SOMATROPIN
     Indication: Muscle atrophy

REACTIONS (2)
  - Weight fluctuation [Unknown]
  - Needle fatigue [Unknown]
